FAERS Safety Report 19074530 (Version 3)
Quarter: 2021Q2

REPORT INFORMATION
  Report Type: Spontaneous
  Country: US (occurrence: US)
  Receive Date: 20210330
  Receipt Date: 20210611
  Transmission Date: 20210717
  Serious: No
  Sender: FDA-Public Use
  Company Number: US-BRISTOL-MYERS SQUIBB COMPANY-BMS-2021-031023

PATIENT
  Age: 38 Year
  Sex: Male
  Weight: 111.11 kg

DRUGS (3)
  1. ELIQUIS [Suspect]
     Active Substance: APIXABAN
     Dosage: 5 MILLIGRAM, BID
     Route: 048
  2. ELIQUIS [Suspect]
     Active Substance: APIXABAN
     Indication: PULMONARY EMBOLISM
     Dosage: 10 MILLIGRAM, BID
     Route: 048
     Dates: start: 202012
  3. ELIQUIS [Suspect]
     Active Substance: APIXABAN
     Indication: PELVIC VENOUS THROMBOSIS
     Dosage: 1 TAB, BID
     Route: 048
     Dates: start: 20200504, end: 202012

REACTIONS (1)
  - Treatment noncompliance [Unknown]

NARRATIVE: CASE EVENT DATE: 202012
